FAERS Safety Report 17093102 (Version 2)
Quarter: 2020Q1

REPORT INFORMATION
  Report Type: Spontaneous
  Country: US (occurrence: US)
  Receive Date: 20191129
  Receipt Date: 20200107
  Transmission Date: 20200409
  Serious: Yes (Life-Threatening, Hospitalization, Other)
  Sender: FDA-Public Use
  Company Number: US-ASTRAZENECA-2019SF68308

PATIENT
  Age: 77 Year
  Sex: Female

DRUGS (1)
  1. BRILINTA [Suspect]
     Active Substance: TICAGRELOR
     Indication: ANGIOPLASTY
     Route: 048
     Dates: start: 20191028, end: 20191029

REACTIONS (12)
  - Hyperventilation [Recovering/Resolving]
  - Loss of consciousness [Unknown]
  - Presyncope [Unknown]
  - Cardiac arrest [Unknown]
  - Contusion [Recovering/Resolving]
  - Epistaxis [Unknown]
  - Chromaturia [Recovering/Resolving]
  - Drug hypersensitivity [Unknown]
  - Respiratory rate increased [Recovering/Resolving]
  - Dyspnoea [Unknown]
  - Atrioventricular block first degree [Unknown]
  - Catheter site haemorrhage [Unknown]

NARRATIVE: CASE EVENT DATE: 2019
